FAERS Safety Report 12465618 (Version 1)
Quarter: 2016Q2

REPORT INFORMATION
  Report Type: Spontaneous
  Country: US (occurrence: US)
  Receive Date: 20160614
  Receipt Date: 20160614
  Transmission Date: 20160815
  Serious: No
  Sender: FDA-Public Use
  Company Number: US-BAYER-2016-111174

PATIENT
  Age: 83 Year
  Sex: Female
  Weight: 63.49 kg

DRUGS (4)
  1. ALEVE [Suspect]
     Active Substance: NAPROXEN SODIUM
     Indication: ARTHRITIS
     Dosage: 1 DF, QD
     Route: 048
     Dates: start: 20160604
  2. FISH OIL [Concomitant]
     Active Substance: FISH OIL
  3. ECOTRIN [Concomitant]
     Active Substance: ASPIRIN
  4. SIMVASTATIN. [Concomitant]
     Active Substance: SIMVASTATIN

REACTIONS (9)
  - Chest pain [Recovered/Resolved]
  - Drug ineffective [None]
  - Product use issue [None]
  - Mobility decreased [Recovered/Resolved]
  - Wrong technique in product usage process [None]
  - Drug ineffective [None]
  - Arthralgia [Recovered/Resolved]
  - Initial insomnia [Recovered/Resolved]
  - Wrong technique in product usage process [None]

NARRATIVE: CASE EVENT DATE: 20160604
